FAERS Safety Report 17139417 (Version 2)
Quarter: 2019Q4

REPORT INFORMATION
  Report Type: Spontaneous
  Country: SE (occurrence: SE)
  Receive Date: 20191211
  Receipt Date: 20191211
  Transmission Date: 20200122
  Serious: Yes (Hospitalization)
  Sender: FDA-Public Use
  Company Number: SE-TEVA-2019-SE-1148939

PATIENT
  Age: 22 Year
  Sex: Female

DRUGS (4)
  1. IMOVANE [Suspect]
     Active Substance: ZOPICLONE
     Dosage: 1 IMOVANE
     Route: 048
     Dates: start: 20180119, end: 20180119
  2. STESOLID [Suspect]
     Active Substance: DIAZEPAM
     Dosage: 3X5 MG OR 3X10 MG
     Route: 048
     Dates: start: 20180119, end: 20180119
  3. LERGIGAN [PROMETHAZINE HYDROCHLORIDE] [Suspect]
     Active Substance: PROMETHAZINE HYDROCHLORIDE
     Dosage: 8-16X25 MG
     Route: 048
     Dates: start: 20180119, end: 20180119
  4. INDERAL [Suspect]
     Active Substance: PROPRANOLOL HYDROCHLORIDE
     Dosage: 40 MILLIGRAM
     Route: 048
     Dates: start: 20180119, end: 20180119

REACTIONS (2)
  - Intentional overdose [Unknown]
  - Intentional self-injury [Unknown]

NARRATIVE: CASE EVENT DATE: 20180119
